FAERS Safety Report 17362408 (Version 4)
Quarter: 2020Q4

REPORT INFORMATION
  Report Type: Report from Study
  Country: ES (occurrence: ES)
  Receive Date: 20200203
  Receipt Date: 20201217
  Transmission Date: 20210113
  Serious: Yes (Disabling)
  Sender: FDA-Public Use
  Company Number: ES-SHIRE-ES202003902

PATIENT
  Age: 7 Year
  Sex: Male
  Weight: 24 kg

DRUGS (6)
  1. TEDUGLUTIDE [Suspect]
     Active Substance: TEDUGLUTIDE
     Indication: SHORT-BOWEL SYNDROME
     Dosage: 1.2 MILLIGRAM (0.05 MILLIGRAM/KILOGRAM DAILY DOSE), 7 DOSES PER WEEK
     Route: 065
     Dates: start: 20190827, end: 20191211
  2. METRONIDAZOL [METRONIDAZOLE] [Concomitant]
     Active Substance: METRONIDAZOLE
     Indication: OVERGROWTH BACTERIAL
  3. TEDUGLUTIDE [Suspect]
     Active Substance: TEDUGLUTIDE
     Indication: SHORT-BOWEL SYNDROME
     Dosage: 1.2 MILLIGRAM (0.05 MILLIGRAM/KILOGRAM DAILY DOSE), 7 DOSES PER WEEK
     Route: 065
     Dates: start: 20190827, end: 20191211
  4. FERROUS SULFATE. [Concomitant]
     Active Substance: FERROUS SULFATE
     Indication: ANAEMIA
  5. TEDUGLUTIDE [Suspect]
     Active Substance: TEDUGLUTIDE
     Indication: SHORT-BOWEL SYNDROME
     Dosage: 1.2 MILLIGRAM (0.05 MILLIGRAM/KILOGRAM DAILY DOSE), 7 DOSES PER WEEK
     Route: 065
     Dates: start: 20190827, end: 20191211
  6. TEDUGLUTIDE [Suspect]
     Active Substance: TEDUGLUTIDE
     Indication: SHORT-BOWEL SYNDROME
     Dosage: 1.2 MILLIGRAM (0.05 MILLIGRAM/KILOGRAM DAILY DOSE), 7 DOSES PER WEEK
     Route: 065
     Dates: start: 20190827, end: 20191211

REACTIONS (1)
  - Intestinal pseudo-obstruction [Recovered/Resolved]

NARRATIVE: CASE EVENT DATE: 20191113
